FAERS Safety Report 6326385-7 (Version None)
Quarter: 2009Q3

REPORT INFORMATION
  Report Type: 
  Country: None (occurrence: None)
  Receive Date: 20090821
  Receipt Date: 20090811
  Transmission Date: 20100115
  Serious: Yes (Other)
  Sender: FDA-Public Use
  Company Number: 2009S1000258

PATIENT
  Age: 63 Year
  Sex: Male

DRUGS (2)
  1. ACITRETIN [Suspect]
     Indication: DRUG USE FOR UNKNOWN INDICATION
     Dosage: 10 MG;QD;PO
     Route: 048
     Dates: start: 20080901, end: 20090801
  2. SERC /00034201/ [Concomitant]

REACTIONS (2)
  - ANAEMIA [None]
  - SOMNOLENCE [None]
